FAERS Safety Report 7287590-9 (Version None)
Quarter: 2011Q1

REPORT INFORMATION
  Report Type: 
  Country: None (occurrence: None)
  Receive Date: 20110211
  Receipt Date: 20110207
  Transmission Date: 20110831
  Serious: Yes (Death)
  Sender: FDA-Public Use
  Company Number: US-ASTELLAS-2011US000540

PATIENT
  Sex: Female

DRUGS (7)
  1. PREDNISONE [Concomitant]
     Indication: PRURITUS
     Dosage: UNK
     Route: 065
     Dates: end: 20110124
  2. CARDIA [Concomitant]
     Indication: BLOOD PRESSURE
     Dosage: UNK
     Route: 065
     Dates: end: 20110124
  3. PROGRAF [Suspect]
     Indication: RENAL TRANSPLANT
     Dosage: 3 MG, UID/QD
     Route: 048
     Dates: start: 19991207, end: 20110124
  4. NUMEROUS OTHER MEDS [Concomitant]
     Indication: PRODUCT USED FOR UNKNOWN INDICATION
     Dosage: UNK
     Route: 065
  5. PLAVIX [Concomitant]
     Indication: PRODUCT USED FOR UNKNOWN INDICATION
     Dosage: UNK
     Route: 065
     Dates: end: 20110124
  6. DIOVAN [Concomitant]
     Indication: BLOOD PRESSURE
     Dosage: UNK
     Route: 065
     Dates: end: 20110124
  7. PRAVASTATIN [Concomitant]
     Indication: BLOOD CHOLESTEROL INCREASED
     Dosage: UNK
     Route: 065
     Dates: end: 20110124

REACTIONS (6)
  - DIABETIC COMPLICATION [None]
  - PNEUMOTHORAX [None]
  - COLLAPSE OF LUNG [None]
  - CARDIAC DISORDER [None]
  - PNEUMONIA [None]
  - RENAL FAILURE [None]
